FAERS Safety Report 4457223-5 (Version None)
Quarter: 2004Q3

REPORT INFORMATION
  Report Type: 
  Country: None (occurrence: None)
  Receive Date: 20040923
  Receipt Date: 20040901
  Transmission Date: 20050211
  Serious: Yes (Hospitalization)
  Sender: FDA-Public Use
  Company Number: FR-BRISTOL-MYERS SQUIBB COMPANY-12692240

PATIENT
  Age: 69 Year
  Sex: Female

DRUGS (6)
  1. GLUCOPHAGE [Suspect]
     Indication: DIABETES MELLITUS
     Dosage: DURATION OF THERAPY:  ^MANY YEARS^
     Route: 048
  2. CIPROFLOXACIN [Suspect]
     Indication: URINARY TRACT INFECTION
     Route: 048
  3. DEROXAT [Concomitant]
  4. AMAREL [Concomitant]
     Route: 048
  5. CELECTOL [Concomitant]
     Dosage: DOSAGE FORM = TABLET
     Route: 048
  6. ALDALIX [Concomitant]
     Dosage: DOSAGE FORM = TABLET
     Route: 048

REACTIONS (2)
  - SIDEROBLASTIC ANAEMIA [None]
  - VITAMIN B12 DECREASED [None]
